FAERS Safety Report 12169382 (Version 1)
Quarter: 2016Q1

REPORT INFORMATION
  Report Type: Spontaneous
  Country: US (occurrence: US)
  Receive Date: 20160310
  Receipt Date: 20160310
  Transmission Date: 20160526
  Serious: No
  Sender: FDA-Public Use
  Company Number: US-OTSUKA-2015_018051

PATIENT
  Sex: Male

DRUGS (1)
  1. ABILIFY MAINTENA [Suspect]
     Active Substance: ARIPIPRAZOLE
     Indication: SCHIZOPHRENIA
     Dosage: 400 MG, EVERY 30 DAYS
     Route: 030
     Dates: start: 2015

REACTIONS (3)
  - Drug effect incomplete [Recovered/Resolved]
  - Inappropriate schedule of drug administration [Unknown]
  - No adverse event [Unknown]
